FAERS Safety Report 5465711-8 (Version None)
Quarter: 2007Q3

REPORT INFORMATION
  Report Type: 
  Country: None (occurrence: None)
  Receive Date: 20070924
  Receipt Date: 20070912
  Transmission Date: 20080115
  Serious: Yes (Hospitalization)
  Sender: FDA-Public Use
  Company Number: US-MERCK-0709USA01779

PATIENT
  Sex: Male

DRUGS (8)
  1. INVANZ [Suspect]
     Indication: ENTEROCOCCAL INFECTION
     Route: 042
     Dates: start: 20070101, end: 20070901
  2. INVANZ [Suspect]
     Indication: STAPHYLOCOCCAL INFECTION
     Route: 042
     Dates: start: 20070101, end: 20070901
  3. COUMADIN [Concomitant]
     Route: 065
  4. ACCUPRIL [Concomitant]
     Route: 065
  5. NITROQUICK [Concomitant]
     Route: 065
  6. TOPROL-XL [Concomitant]
     Route: 065
  7. TRIAMCINOLONE [Concomitant]
     Route: 065
  8. AUGMENTIN '125' [Concomitant]
     Route: 065

REACTIONS (4)
  - ENCEPHALOPATHY [None]
  - MYOCARDIAL INFARCTION [None]
  - RENAL FAILURE [None]
  - THROMBOSIS [None]
